FAERS Safety Report 11214598 (Version 3)
Quarter: 2015Q2

REPORT INFORMATION
  Report Type: Spontaneous
  Country: None (occurrence: None)
  Receive Date: 20150616
  Receipt Date: 20150616
  Transmission Date: 20150821
  Serious: No
  Sender: FDA-Public Use
  Company Number: HA14-475-AE

PATIENT
  Age: 72 Year
  Sex: Male
  Weight: 86.18 kg

DRUGS (2)
  1. NAPROXEN. [Suspect]
     Active Substance: NAPROXEN
     Indication: PAIN
     Dosage: 2 TABS/TWICE/ ORAL
  2. NAPROXEN. [Suspect]
     Active Substance: NAPROXEN
     Indication: INFLAMMATION
     Dosage: 2 TABS/TWICE/ ORAL

REACTIONS (7)
  - Stevens-Johnson syndrome [None]
  - Hypoaesthesia [None]
  - Erythema [None]
  - Blister [None]
  - Hyperaesthesia [None]
  - Limb discomfort [None]
  - Condition aggravated [None]
